FAERS Safety Report 8030336-7 (Version None)
Quarter: 2011Q4

REPORT INFORMATION
  Report Type: 
  Country: None (occurrence: None)
  Receive Date: 20111130
  Receipt Date: 20110822
  Transmission Date: 20120403
  Serious: Yes (Hospitalization)
  Sender: FDA-Public Use
  Company Number: US200812002355

PATIENT
  Age: 59 Year
  Sex: Female
  Weight: 92.5 kg

DRUGS (13)
  1. HYDROCHLOROTHIAZIDE [Concomitant]
  2. PROTONIX [Concomitant]
  3. GLUCOTROL XL [Concomitant]
  4. LISINOPRIL [Concomitant]
  5. BYETTA [Suspect]
     Dosage: 5 UG
     Dates: start: 20051101, end: 20070403
  6. VYTORIN [Concomitant]
  7. SYNTHROID [Concomitant]
  8. ACCUPRIL [Concomitant]
  9. FERROUS SULFATE TAB [Concomitant]
  10. GLUCOPHAGE [Concomitant]
  11. MOBIC [Concomitant]
  12. MULTIVITAMIN [Concomitant]
  13. METHOCARBAMOL [Concomitant]

REACTIONS (2)
  - PANCREATITIS ACUTE [None]
  - BLOOD GLUCOSE INCREASED [None]
